FAERS Safety Report 9109177 (Version 1)
Quarter: 2013Q1

REPORT INFORMATION
  Report Type: Spontaneous
  Country: US (occurrence: US)
  Receive Date: 20130222
  Receipt Date: 20130222
  Transmission Date: 20140127
  Serious: No
  Sender: FDA-Public Use
  Company Number: US-ASTRAZENECA-2013SE05081

PATIENT
  Age: 42 Year
  Sex: Female
  Weight: 113.4 kg

DRUGS (5)
  1. SYMBICORT PMDI [Suspect]
     Indication: ALLERGIC GRANULOMATOUS ANGIITIS
     Dosage: UNKNOWN
     Route: 055
  2. SYMBICORT PMDI [Suspect]
     Indication: ALLERGIC GRANULOMATOUS ANGIITIS
     Dosage: 160/4.5 MCG, TWO PUFFS TWICE A DAY
     Route: 055
     Dates: start: 2012
  3. OMEPRAZOLE [Suspect]
     Indication: GASTROOESOPHAGEAL REFLUX DISEASE
     Route: 048
     Dates: start: 2011
  4. ALBUTEROL [Concomitant]
     Indication: ALLERGIC GRANULOMATOUS ANGIITIS
     Route: 055
     Dates: start: 2011
  5. ALBUTEROL [Concomitant]
     Indication: ALLERGIC GRANULOMATOUS ANGIITIS
     Route: 055
     Dates: start: 2011

REACTIONS (3)
  - Dyspnoea [Unknown]
  - Drug dose omission [Unknown]
  - Off label use [Unknown]
